FAERS Safety Report 9925009 (Version 1)
Quarter: 2014Q1

REPORT INFORMATION
  Report Type: Spontaneous
  Country: NL (occurrence: None)
  Receive Date: 20140221
  Receipt Date: 20140221
  Transmission Date: 20141002
  Serious: Yes (Other)
  Sender: FDA-Public Use
  Company Number: 2014NL0063

PATIENT
  Sex: Female

DRUGS (1)
  1. ANAKINRA [Suspect]
     Route: 064

REACTIONS (4)
  - Foetal distress syndrome [None]
  - Small for dates baby [None]
  - Maternal drugs affecting foetus [None]
  - Caesarean section [None]
